FAERS Safety Report 5232386-2 (Version None)
Quarter: 2007Q1

REPORT INFORMATION
  Report Type: 
  Country: None (occurrence: None)
  Receive Date: 20070205
  Receipt Date: 20070124
  Transmission Date: 20070707
  Serious: Yes (Hospitalization, Other)
  Sender: FDA-Public Use
  Company Number: 2007SP001665

PATIENT
  Age: 59 Year
  Sex: Male

DRUGS (2)
  1. TEMODAL [Suspect]
     Indication: DISEASE RECURRENCE
     Dosage: 150 MG/M2; QD; PO
     Route: 048
  2. TEMODAL [Suspect]
     Indication: GLIOBLASTOMA MULTIFORME
     Dosage: 150 MG/M2; QD; PO
     Route: 048

REACTIONS (1)
  - INTERSTITIAL LUNG DISEASE [None]
